FAERS Safety Report 6877669-5 (Version None)
Quarter: 2010Q3

REPORT INFORMATION
  Report Type: 
  Country: None (occurrence: None)
  Receive Date: 20100727
  Receipt Date: 20100614
  Transmission Date: 20110219
  Serious: No
  Sender: FDA-Public Use
  Company Number: US-ABBOTT-10P-163-0646376-00

PATIENT
  Sex: Female
  Weight: 59.02 kg

DRUGS (8)
  1. SYNTHROID [Suspect]
     Indication: HYPOTHYROIDISM
     Dates: start: 20030101, end: 20100401
  2. LEVOTHYROXINE [Suspect]
     Indication: HYPOTHYROIDISM
     Dates: start: 20100401
  3. DIGOXIN [Concomitant]
     Indication: ATRIAL FIBRILLATION
  4. FLAX SEED OIL [Concomitant]
     Indication: ROUTINE HEALTH MAINTENANCE
  5. VITAMINS [Concomitant]
     Indication: VITAMIN SUPPLEMENTATION
  6. CLARITIN [Concomitant]
     Indication: HYPERSENSITIVITY
  7. LORAZEPAM [Concomitant]
     Indication: AGITATION
  8. ECANACIA [Concomitant]
     Indication: IMMUNE SYSTEM DISORDER

REACTIONS (12)
  - AGGRESSION [None]
  - AGITATION [None]
  - CONSTIPATION [None]
  - DEMENTIA ALZHEIMER'S TYPE [None]
  - FEAR [None]
  - HYPOPHAGIA [None]
  - LOSS OF CONSCIOUSNESS [None]
  - MUSCLE SPASMS [None]
  - OPEN WOUND [None]
  - PERIORBITAL HAEMATOMA [None]
  - POSTURE ABNORMAL [None]
  - SKIN DISORDER [None]
